FAERS Safety Report 10599200 (Version 1)
Quarter: 2014Q4

REPORT INFORMATION
  Report Type: Report from Study
  Country: AR (occurrence: AR)
  Receive Date: 20141121
  Receipt Date: 20141121
  Transmission Date: 20150529
  Serious: Yes (Hospitalization)
  Sender: FDA-Public Use
  Company Number: PHHY2014AR152736

PATIENT
  Sex: Male

DRUGS (1)
  1. DIOVAN [Suspect]
     Active Substance: VALSARTAN
     Indication: HYPERTENSION
     Dosage: 0.5 DF (320 UNITS NOT REPORTED), UNK
     Route: 048

REACTIONS (3)
  - Arterial occlusive disease [Recovered/Resolved]
  - Wrong technique in drug usage process [Unknown]
  - Pain in extremity [Recovered/Resolved]
